FAERS Safety Report 7406743-X (Version None)
Quarter: 2011Q2

REPORT INFORMATION
  Report Type: 
  Country: None (occurrence: None)
  Receive Date: 20110406
  Receipt Date: 20110406
  Transmission Date: 20111010
  Serious: Yes (Hospitalization)
  Sender: FDA-Public Use
  Company Number: None

PATIENT
  Age: 66 Year
  Sex: Male
  Weight: 77.7 kg

DRUGS (2)
  1. DECITABINE [Suspect]
     Dosage: 20 MG/M2 (IV X 5 DAYS)
     Route: 042
     Dates: start: 20110311
  2. BEXAROTENE [Suspect]
     Indication: ACUTE MYELOID LEUKAEMIA
     Dosage: 200 MG/M2 P.O.
     Route: 048
     Dates: start: 20110403

REACTIONS (4)
  - PAIN [None]
  - EYE SWELLING [None]
  - STAPHYLOCOCCUS TEST POSITIVE [None]
  - FEBRILE NEUTROPENIA [None]
